FAERS Safety Report 24790772 (Version 2)
Quarter: 2025Q1

REPORT INFORMATION
  Report Type: Spontaneous
  Country: FR (occurrence: FR)
  Receive Date: 20241230
  Receipt Date: 20250307
  Transmission Date: 20250408
  Serious: Yes (Life-Threatening, Hospitalization)
  Sender: MYLAN
  Company Number: FR-DEAQVIDAP-20240119

PATIENT
  Age: 65 Year
  Sex: Male
  Weight: 99 kg

DRUGS (11)
  1. PREDNISONE [Suspect]
     Active Substance: PREDNISONE
     Indication: Hormone-refractory prostate cancer
     Dosage: 5 MILLIGRAM, BID
     Dates: start: 20240906, end: 20241203
  2. DOCETAXEL [Suspect]
     Active Substance: DOCETAXEL
     Indication: Hormone-refractory prostate cancer
     Dosage: 75 MILLIGRAM/SQ. METER, Q3W
     Dates: start: 20240906, end: 20240906
  3. DOCETAXEL [Suspect]
     Active Substance: DOCETAXEL
     Dosage: 75 MILLIGRAM/SQ. METER, Q3W
     Dates: start: 20241115, end: 20241115
  4. LEVOTHYROXINE [Concomitant]
     Active Substance: LEVOTHYROXINE
  5. ALBUTEROL [Concomitant]
     Active Substance: ALBUTEROL
  6. FILGRASTIM [Concomitant]
     Active Substance: FILGRASTIM
  7. ELIQUIS [Concomitant]
     Active Substance: APIXABAN
  8. EXFORGE [Concomitant]
     Active Substance: AMLODIPINE BESYLATE\VALSARTAN
  9. FLECAINIDE [Concomitant]
     Active Substance: FLECAINIDE
  10. ROSUVASTATIN [Concomitant]
     Active Substance: ROSUVASTATIN
  11. URAPIDIL [Concomitant]
     Active Substance: URAPIDIL

REACTIONS (1)
  - Oesophagitis [Recovering/Resolving]

NARRATIVE: CASE EVENT DATE: 20241203
